FAERS Safety Report 5738793-3 (Version None)
Quarter: 2008Q2

REPORT INFORMATION
  Report Type: 
  Country: None (occurrence: None)
  Receive Date: 20080515
  Receipt Date: 20080225
  Transmission Date: 20081010
  Serious: No
  Sender: FDA-Public Use
  Company Number: A0713019A

PATIENT
  Sex: Male

DRUGS (1)
  1. VERAMYST [Suspect]
     Route: 045
     Dates: start: 20080201

REACTIONS (1)
  - RHINORRHOEA [None]
